FAERS Safety Report 4860518-4 (Version None)
Quarter: 2005Q4

REPORT INFORMATION
  Report Type: 
  Country: None (occurrence: None)
  Receive Date: 20051216
  Receipt Date: 20051128
  Transmission Date: 20060501
  Serious: Yes (Hospitalization)
  Sender: FDA-Public Use
  Company Number: US200512000811

PATIENT
  Age: 51 Year
  Sex: Male

DRUGS (5)
  1. ZYPREXA [Suspect]
     Dosage: 2.5 MG, 2/D,
     Dates: start: 20030124, end: 20040601
  2. TRICOR [Concomitant]
  3. ZOCOR [Concomitant]
  4. DIOVAN [Concomitant]
  5. NIASPAN [Concomitant]

REACTIONS (9)
  - ARTERIAL THROMBOSIS LIMB [None]
  - HEPATIC STEATOSIS [None]
  - HEPATOMEGALY [None]
  - HYPERTRIGLYCERIDAEMIA [None]
  - NEOPLASM [None]
  - PANCREATIC PSEUDOCYST [None]
  - PANCREATITIS ACUTE [None]
  - PANCREATITIS CHRONIC [None]
  - TREATMENT NONCOMPLIANCE [None]
